FAERS Safety Report 20224573 (Version 1)
Quarter: 2021Q4

REPORT INFORMATION
  Report Type: Spontaneous
  Country: KR (occurrence: KR)
  Receive Date: 20211223
  Receipt Date: 20211223
  Transmission Date: 20220303
  Serious: Yes (Death)
  Sender: FDA-Public Use
  Company Number: KR-ELI_LILLY_AND_COMPANY-KR202112010267

PATIENT
  Age: 70 Year
  Sex: Male

DRUGS (3)
  1. HUMALOG [Suspect]
     Active Substance: INSULIN LISPRO
     Indication: Diabetes mellitus
     Dosage: 18 INTERNATIONAL UNIT, DAILY
     Route: 058
     Dates: start: 20170102, end: 20170113
  2. HUMALOG [Suspect]
     Active Substance: INSULIN LISPRO
     Dosage: 6 INTERNATIONAL UNIT, DAILY
     Route: 058
     Dates: start: 20170102, end: 20170113
  3. HUMALOG [Suspect]
     Active Substance: INSULIN LISPRO
     Dosage: UNK UNK, UNKNOWN
     Route: 058
     Dates: start: 20170113, end: 201702

REACTIONS (1)
  - Cerebral haemorrhage [Fatal]

NARRATIVE: CASE EVENT DATE: 20170201
